FAERS Safety Report 24455024 (Version 2)
Quarter: 2024Q4

REPORT INFORMATION
  Report Type: Report from Study
  Country: US (occurrence: US)
  Receive Date: 20241017
  Receipt Date: 20241018
  Transmission Date: 20250114
  Serious: No
  Sender: ROCHE
  Company Number: US-ROCHE-3475825

PATIENT
  Age: 49 Year
  Sex: Male

DRUGS (8)
  1. RITUXAN [Suspect]
     Active Substance: RITUXIMAB
     Indication: Encephalitis
     Route: 041
     Dates: start: 202309
  2. RITUXAN [Suspect]
     Active Substance: RITUXIMAB
     Indication: Encephalomyelitis
  3. CELLCEPT [Suspect]
     Active Substance: MYCOPHENOLATE MOFETIL
     Indication: Product used for unknown indication
     Route: 065
  4. ZOLOFT [Concomitant]
     Active Substance: SERTRALINE HYDROCHLORIDE
  5. LIORESAL [Concomitant]
     Active Substance: BACLOFEN
  6. PREDNISONE [Concomitant]
     Active Substance: PREDNISONE
  7. ALBUTEROL [Concomitant]
     Active Substance: ALBUTEROL
  8. PANTOPRAZOLE [Concomitant]
     Active Substance: PANTOPRAZOLE

REACTIONS (5)
  - Gait disturbance [Not Recovered/Not Resolved]
  - Gait disturbance [Not Recovered/Not Resolved]
  - Dysarthria [Not Recovered/Not Resolved]
  - Dysphagia [Not Recovered/Not Resolved]
  - Choking [Recovered/Resolved]
